FAERS Safety Report 6997519-6 (Version None)
Quarter: 2010Q3

REPORT INFORMATION
  Report Type: 
  Country: None (occurrence: None)
  Receive Date: 20100918
  Receipt Date: 20091015
  Transmission Date: 20110219
  Serious: Yes (Other)
  Sender: FDA-Public Use
  Company Number: US-WYE-H11624309

PATIENT
  Sex: Female
  Weight: 70.37 kg

DRUGS (3)
  1. PRISTIQ [Suspect]
     Indication: MENOPAUSAL DEPRESSION
     Route: 048
     Dates: start: 20091011
  2. VITAMINS [Concomitant]
     Dosage: UNKNOWN
  3. CETIRIZINE HYDROCHLORIDE [Concomitant]
     Indication: HYPERSENSITIVITY
     Dosage: UNKNOWN

REACTIONS (1)
  - PARAESTHESIA [None]
